FAERS Safety Report 5772504-0 (Version None)
Quarter: 2008Q2

REPORT INFORMATION
  Report Type: 
  Country: None (occurrence: None)
  Receive Date: 20080610
  Receipt Date: 20080530
  Transmission Date: 20081010
  Serious: Yes (Other)
  Sender: FDA-Public Use
  Company Number: ADE#08-081

PATIENT
  Age: 56 Year
  Sex: Male
  Weight: 95.2554 kg

DRUGS (3)
  1. TRAMADOL HYDROCHLORIDE [Suspect]
     Indication: PROCEDURAL PAIN
     Dates: start: 20071210, end: 20080116
  2. TRAMADOL HYDROCHLORIDE [Suspect]
     Indication: SPINAL FUSION SURGERY
     Dates: start: 20071210, end: 20080116
  3. PREDNISONE TAB [Concomitant]

REACTIONS (1)
  - UNEVALUABLE EVENT [None]
